FAERS Safety Report 5054281-4 (Version None)
Quarter: 2006Q3

REPORT INFORMATION
  Report Type: 
  Country: None (occurrence: None)
  Receive Date: 20060713
  Receipt Date: 20060629
  Transmission Date: 20061208
  Serious: Yes (Other)
  Sender: FDA-Public Use
  Company Number: 2006084826

PATIENT
  Sex: Male

DRUGS (1)
  1. LISTERINE MENTHOL (MENTHOL, METHYL SALICYLATE, EUCALYPTOL, THYMOL) [Suspect]
     Indication: DENTAL DISORDER PROPHYLAXIS
     Dosage: ONCE, ORAL
     Route: 048
     Dates: start: 20060101, end: 20060101

REACTIONS (1)
  - ASTHMA [None]
